FAERS Safety Report 7813394-1 (Version None)
Quarter: 2011Q4

REPORT INFORMATION
  Report Type: 
  Country: None (occurrence: None)
  Receive Date: 20111014
  Receipt Date: 20111003
  Transmission Date: 20120403
  Serious: Yes (Hospitalization)
  Sender: FDA-Public Use
  Company Number: NL-AMGEN-NLDSP2011051707

PATIENT
  Age: 60 Year
  Sex: Female

DRUGS (2)
  1. ENBREL [Suspect]
     Indication: PSORIATIC ARTHROPATHY
     Dosage: 50 MG, WEEKLY
     Dates: start: 20110910, end: 20111001
  2. NEXIUM [Concomitant]
     Dosage: UNK

REACTIONS (5)
  - SYNCOPE [None]
  - SEPSIS [None]
  - BACTERIAL INFECTION [None]
  - MUSCULOSKELETAL STIFFNESS [None]
  - HEADACHE [None]
